FAERS Safety Report 9925145 (Version 2)
Quarter: 2014Q2

REPORT INFORMATION
  Report Type: Report from Study
  Country: DE (occurrence: TR)
  Receive Date: 20140226
  Receipt Date: 20140418
  Transmission Date: 20141212
  Serious: Yes (Other)
  Sender: FDA-Public Use
  Company Number: DE-ACTELION-A-NJ2014-95425

PATIENT
  Age: 5 Month
  Sex: Male

DRUGS (1)
  1. VENTAVIS [Suspect]
     Indication: PULMONARY HYPERTENSION
     Dosage: UNK, UNK, QID
     Route: 055
     Dates: start: 20140204, end: 20140218

REACTIONS (2)
  - Cardiovascular disorder [Unknown]
  - Off label use [Unknown]
